FAERS Safety Report 11540248 (Version 2)
Quarter: 2015Q4

REPORT INFORMATION
  Report Type: Spontaneous
  Country: SK (occurrence: SK)
  Receive Date: 20150923
  Receipt Date: 20151110
  Transmission Date: 20160304
  Serious: Yes (Hospitalization)
  Sender: FDA-Public Use
  Company Number: SK-SA-2015SA143359

PATIENT
  Age: 27 Year
  Sex: Male

DRUGS (4)
  1. LEMTRADA [Suspect]
     Active Substance: ALEMTUZUMAB
     Indication: MULTIPLE SCLEROSIS
     Route: 042
     Dates: start: 20150810, end: 20150815
  2. BACLOFEN. [Concomitant]
     Active Substance: BACLOFEN
     Dosage: 15-15-10
  3. HERPESIN [Concomitant]
     Dosage: 1-0-0
  4. MILGAMMA [Concomitant]
     Active Substance: VITAMIN B

REACTIONS (2)
  - Multiple sclerosis relapse [Not Recovered/Not Resolved]
  - Epilepsy [Unknown]

NARRATIVE: CASE EVENT DATE: 201509
